FAERS Safety Report 7218130-8 (Version None)
Quarter: 2011Q1

REPORT INFORMATION
  Report Type: 
  Country: None (occurrence: None)
  Receive Date: 20110110
  Receipt Date: 20101221
  Transmission Date: 20110831
  Serious: No
  Sender: FDA-Public Use
  Company Number: US-B.I. PHARMACEUTICALS,INC./RIDGEFIELD-2010-BP-15240BP

PATIENT
  Age: 78 Year
  Sex: Male

DRUGS (10)
  1. XANAX [Concomitant]
     Indication: ANXIETY
     Dosage: 1 MG
     Route: 048
     Dates: start: 20060101
  2. PREVACID [Concomitant]
     Indication: GASTROOESOPHAGEAL REFLUX DISEASE
     Dosage: 30 MG
     Route: 048
  3. FINASTRIDE [Concomitant]
     Indication: PROSTATIC DISORDER
     Dosage: 5 MG
     Route: 048
     Dates: start: 20090101
  4. COLACE [Concomitant]
     Route: 048
  5. METOPROLOL [Concomitant]
     Indication: HYPERTENSION
     Dosage: 25 MG
     Route: 048
     Dates: start: 20070101
  6. VITAMIN B-12 [Concomitant]
     Indication: SUPPLEMENTATION THERAPY
     Dosage: 500 MG
     Route: 048
     Dates: start: 20070101
  7. PRADAXA [Suspect]
     Indication: ATRIAL FIBRILLATION
     Dosage: 300 MG
     Route: 048
     Dates: start: 20101201
  8. TRICOR [Concomitant]
     Indication: BLOOD CHOLESTEROL INCREASED
     Dosage: 40 MG
     Route: 048
     Dates: start: 20070101
  9. HYDROCHLOROTHIAZIDE [Concomitant]
     Indication: HYPERTENSION
     Route: 048
     Dates: start: 20070101
  10. PREVACID [Concomitant]
     Indication: ABDOMINAL DISCOMFORT

REACTIONS (5)
  - HOT FLUSH [None]
  - DIZZINESS [None]
  - NAUSEA [None]
  - FLATULENCE [None]
  - ABDOMINAL PAIN UPPER [None]
